FAERS Safety Report 6229664-7 (Version None)
Quarter: 2009Q2

REPORT INFORMATION
  Report Type: 
  Country: None (occurrence: None)
  Receive Date: 20090615
  Receipt Date: 20090604
  Transmission Date: 20091009
  Serious: Yes (Disabling, Other)
  Sender: FDA-Public Use
  Company Number: B0578314A

PATIENT
  Sex: Female
  Weight: 60 kg

DRUGS (2)
  1. PAROXETINE HCL [Suspect]
     Dosage: 20MG THREE TIMES PER DAY
     Route: 048
     Dates: start: 20010427
  2. CELEBREX [Suspect]
     Dosage: 100MG FOUR TIMES PER DAY
     Route: 048
     Dates: start: 20040617, end: 20040627

REACTIONS (4)
  - ILL-DEFINED DISORDER [None]
  - PAIN [None]
  - RESTLESS LEGS SYNDROME [None]
  - VARICOSE VEIN [None]
